FAERS Safety Report 12300143 (Version 4)
Quarter: 2016Q3

REPORT INFORMATION
  Report Type: Report from Study
  Country: JP (occurrence: JP)
  Receive Date: 20160425
  Receipt Date: 20160712
  Transmission Date: 20161109
  Serious: Yes (Death, Life-Threatening, Other)
  Sender: FDA-Public Use
  Company Number: JP-ROCHE-1744296

PATIENT
  Age: 65 Year
  Sex: Female
  Weight: 49 kg

DRUGS (8)
  1. TSUMURA GOSHAJINKIGAN [Concomitant]
     Active Substance: HERBALS
     Indication: PROPHYLAXIS
     Dosage: THE FRACTIONATION DOSE FREQUENCY IS UNCERTAIN.
     Route: 048
     Dates: end: 20150903
  2. LOXOPROFEN [Concomitant]
     Active Substance: LOXOPROFEN
     Dosage: THE FRACTIONATION DOSE FREQUENCY IS UNCERTAIN.
     Route: 048
     Dates: end: 20150903
  3. PERTUZUMAB [Suspect]
     Active Substance: PERTUZUMAB
     Indication: BREAST CANCER
     Dosage: FORM STRENGTH: 420 MG/140 ML
     Route: 041
     Dates: start: 20150828, end: 20150828
  4. SLOW-K [Concomitant]
     Active Substance: POTASSIUM CHLORIDE
     Dosage: THE FRACTIONATION DOSE FREQUENCY IS UNCERTAIN.
     Route: 048
     Dates: end: 20150903
  5. TRASTUZUMAB [Suspect]
     Active Substance: TRASTUZUMAB
     Indication: BREAST CANCER
     Route: 041
     Dates: start: 20150828, end: 20150828
  6. DOCETAXEL. [Suspect]
     Active Substance: DOCETAXEL
     Indication: BREAST CANCER
     Route: 041
     Dates: start: 20150828, end: 20150828
  7. BROTIZOLAM [Concomitant]
     Active Substance: BROTIZOLAM
     Dosage: THE FRACTIONATION DOSE FREQUENCY IS UNCERTAIN.
     Route: 048
     Dates: end: 20150903
  8. WARFARIN [Concomitant]
     Active Substance: WARFARIN
     Dosage: THE FRACTIONATION DOSE FREQUENCY IS UNCERTAIN.
     Route: 048
     Dates: end: 20150903

REACTIONS (3)
  - Sepsis [Fatal]
  - Intestinal ischaemia [Recovering/Resolving]
  - Febrile neutropenia [Recovered/Resolved]

NARRATIVE: CASE EVENT DATE: 20150903
